FAERS Safety Report 8678576 (Version 2)
Quarter: 2013Q2

REPORT INFORMATION
  Report Type: Spontaneous
  Country: US (occurrence: None)
  Receive Date: 20120406
  Receipt Date: 20120705
  Transmission Date: 20140414
  Serious: Yes (Life-Threatening, Hospitalization)
  Sender: FDA-Public Use
  Company Number: US-CYPR-2011-000084

PATIENT
  Age: 62 Year
  Sex: Male
  Weight: 115 kg

DRUGS (10)
  1. CLOPIDOGREL [Suspect]
     Indication: ANTIPLATELET THERAPY
     Route: 048
     Dates: start: 20110416, end: 20111127
  2. ASPIRIN [Suspect]
     Indication: CORONARY ARTERY DISEASE
     Route: 048
     Dates: start: 20050603, end: 20110118
  3. FEXOFENADINE HCL W/PSEUDOEPHEDRINE HCL [Concomitant]
  4. ISOSORBIDE MONONITRATE [Concomitant]
  5. METFORMIN HYDROCHLORIDE [Concomitant]
  6. PRAVASTATIN [Concomitant]
  7. QUINAPRIL HYDROCHLORIDE [Concomitant]
  8. VITAMIN D [Concomitant]
  9. CARVEDILOL [Concomitant]
  10. CYPHER STENT [Concomitant]

REACTIONS (1)
  - CARDIAC ARREST [None]
